FAERS Safety Report 9122116 (Version 1)
Quarter: 2013Q1

REPORT INFORMATION
  Report Type: Spontaneous
  Country: US (occurrence: None)
  Receive Date: 20130125
  Receipt Date: 20130125
  Transmission Date: 20140127
  Serious: No
  Sender: FDA-Public Use
  Company Number: 2012US-004445

PATIENT
  Age: 61 Year
  Sex: Female
  Weight: 118 kg

DRUGS (1)
  1. OMONTYS (PEGINESATIDE) SOLUTION FOR INJECTION [Suspect]
     Indication: NEPHROGENIC ANAEMIA
     Route: 042
     Dates: start: 20121030, end: 20121030

REACTIONS (7)
  - Feeling abnormal [None]
  - Anxiety [None]
  - Tremor [None]
  - Malaise [None]
  - Dyspnoea [None]
  - Nausea [None]
  - Body temperature increased [None]
